FAERS Safety Report 23112081 (Version 2)
Quarter: 2023Q4

REPORT INFORMATION
  Report Type: Spontaneous
  Country: US (occurrence: US)
  Receive Date: 20231026
  Receipt Date: 20231107
  Transmission Date: 20240110
  Serious: Yes (Hospitalization)
  Sender: FDA-Public Use
  Company Number: US-BIOMARINAP-US-2023-153505

PATIENT

DRUGS (3)
  1. VIMIZIM [Suspect]
     Active Substance: ELOSULFASE ALFA
     Indication: Mucopolysaccharidosis IV
     Dosage: 130 MILLIGRAM, QW
     Route: 042
     Dates: start: 20231018
  2. HYDROCODONE [Concomitant]
     Active Substance: HYDROCODONE
     Indication: Product used for unknown indication
     Dosage: 5 MILLIGRAM
  3. ACETAMINOPHEN [Concomitant]
     Active Substance: ACETAMINOPHEN
     Indication: Product used for unknown indication

REACTIONS (6)
  - Pelvic fracture [Not Recovered/Not Resolved]
  - Asthenia [Not Recovered/Not Resolved]
  - Hip arthroplasty [Not Recovered/Not Resolved]
  - Procedural pain [Not Recovered/Not Resolved]
  - Fall [Not Recovered/Not Resolved]
  - Osteopenia [Not Recovered/Not Resolved]

NARRATIVE: CASE EVENT DATE: 20230731
